FAERS Safety Report 20764365 (Version 3)
Quarter: 2024Q1

REPORT INFORMATION
  Report Type: Spontaneous
  Country: US (occurrence: US)
  Receive Date: 20220428
  Receipt Date: 20240311
  Transmission Date: 20240410
  Serious: Yes (Other)
  Sender: FDA-Public Use
  Company Number: US-PFIZER INC-202200410927

PATIENT
  Age: 85 Year
  Sex: Female

DRUGS (18)
  1. IBRANCE [Suspect]
     Active Substance: PALBOCICLIB
     Dosage: 125 MG DAILY FOR 21 DAYS ON 7 DAYS OFF
     Route: 048
     Dates: start: 20210701
  2. IBRANCE [Suspect]
     Active Substance: PALBOCICLIB
     Dosage: 125 MG CAPSULE ONCE DAILY FOR 21 DAYS THEN OFF FOR 7 DAYS
     Route: 048
     Dates: start: 202110
  3. KEPPRA [Concomitant]
     Active Substance: LEVETIRACETAM
  4. CALCIUM [Concomitant]
     Active Substance: CALCIUM
  5. VITAMINS [Concomitant]
     Active Substance: VITAMINS
  6. ALEVE [Concomitant]
     Active Substance: NAPROXEN SODIUM
  7. RECLAST [Concomitant]
     Active Substance: ZOLEDRONIC ACID
  8. LOSARLAN [Concomitant]
  9. ATORVASTATIN [Concomitant]
     Active Substance: ATORVASTATIN
  10. METOPROLOL [Concomitant]
     Active Substance: METOPROLOL
  11. FUROSEMIDE [Concomitant]
     Active Substance: FUROSEMIDE
  12. MELFORMIN [Concomitant]
  13. GLIMEPIRIDE [Concomitant]
     Active Substance: GLIMEPIRIDE
  14. LETROZOLE [Concomitant]
     Active Substance: LETROZOLE
  15. ZOMETA [Concomitant]
     Active Substance: ZOLEDRONIC ACID
  16. MAGNESIUM [Concomitant]
     Active Substance: MAGNESIUM
  17. VITAMIN B12 [Concomitant]
     Active Substance: CYANOCOBALAMIN
  18. LOSARTAN [Concomitant]
     Active Substance: LOSARTAN

REACTIONS (5)
  - Leukopenia [Recovering/Resolving]
  - Product dose omission in error [Unknown]
  - Memory impairment [Unknown]
  - Alopecia [Unknown]
  - Decreased appetite [Unknown]
